FAERS Safety Report 20131895 (Version 1)
Quarter: 2021Q4

REPORT INFORMATION
  Report Type: Report from Study
  Country: IN (occurrence: IN)
  Receive Date: 20211130
  Receipt Date: 20211130
  Transmission Date: 20220303
  Serious: Yes (Hospitalization)
  Sender: FDA-Public Use
  Company Number: IN-MYLANLABS-2021M1088787

PATIENT
  Sex: Female

DRUGS (5)
  1. ETOPOSIDE [Suspect]
     Active Substance: ETOPOSIDE
     Indication: Gestational trophoblastic tumour
     Dosage: UNK, ADMINISTERED AS A PART OF EMACO CHEMOTHERAPY.
     Route: 065
  2. METHOTREXATE [Suspect]
     Active Substance: METHOTREXATE
     Indication: Gestational trophoblastic tumour
     Dosage: UNK, ADMINISTERED AS A PART OF EMACO CHEMOTHERAPY.
     Route: 065
  3. CYCLOPHOSPHAMIDE [Suspect]
     Active Substance: CYCLOPHOSPHAMIDE
     Indication: Gestational trophoblastic tumour
     Dosage: UNK, ADMINISTERED AS A PART OF EMACO CHEMOTHERAPY.
     Route: 065
  4. ACTINOMYCIN D [Suspect]
     Active Substance: DACTINOMYCIN
     Indication: Gestational trophoblastic tumour
     Dosage: UNK, ADMINISTERED AS A PART OF EMACO CHEMOTHERAPY.
     Route: 065
  5. ONCOVIN [Suspect]
     Active Substance: VINCRISTINE SULFATE
     Indication: Gestational trophoblastic tumour
     Dosage: UNK, ADMINISTERED AS A PART OF EMACO CHEMOTHERAPY.
     Route: 065

REACTIONS (1)
  - Drug resistance [Unknown]
